FAERS Safety Report 25979933 (Version 1)
Quarter: 2025Q4

REPORT INFORMATION
  Report Type: Spontaneous
  Country: US (occurrence: US)
  Receive Date: 20251030
  Receipt Date: 20251030
  Transmission Date: 20260118
  Serious: Yes (Other)
  Sender: LABORATOIRES SERB
  Company Number: US-SERB S.A.S.-2187556

PATIENT
  Age: 64 Year
  Sex: Female

DRUGS (7)
  1. CYANOKIT [Suspect]
     Active Substance: HYDROXOCOBALAMIN
     Indication: Vasoplegia syndrome
  2. EPINEPHRINE [Concomitant]
     Active Substance: EPINEPHRINE
  3. PHENYLEPHRINE [Concomitant]
     Active Substance: PHENYLEPHRINE
  4. METHYLENE BLUE [Concomitant]
     Active Substance: METHYLENE BLUE
  5. ANGIOTENSIN II [Concomitant]
     Active Substance: ANGIOTENSIN II
  6. VASOPRESSIN [Concomitant]
     Active Substance: VASOPRESSIN
  7. NOREPINEPHRINE [Concomitant]
     Active Substance: NOREPINEPHRINE

REACTIONS (7)
  - Acute kidney injury [Not Recovered/Not Resolved]
  - Drug effective for unapproved indication [Unknown]
  - Off label use [Unknown]
  - Blood lactic acid increased [Unknown]
  - Pneumatosis intestinalis [Unknown]
  - Peritonitis [Unknown]
  - Liver injury [Recovered/Resolved]
